FAERS Safety Report 19021247 (Version 2)
Quarter: 2021Q4

REPORT INFORMATION
  Report Type: Other
  Country: SG (occurrence: SG)
  Receive Date: 20210317
  Receipt Date: 20211012
  Transmission Date: 20220303
  Serious: Yes (Other)
  Sender: FDA-Public Use
  Company Number: SG-ROCHE-2788787

PATIENT
  Age: 64 Year
  Sex: Female

DRUGS (2)
  1. HERCEPTIN [Suspect]
     Active Substance: TRASTUZUMAB
     Indication: Breast cancer metastatic
     Route: 058
  2. KADCYLA [Suspect]
     Active Substance: ADO-TRASTUZUMAB EMTANSINE
     Indication: Breast cancer metastatic
     Route: 042

REACTIONS (6)
  - Metastatic neoplasm [Unknown]
  - Metastases to central nervous system [Unknown]
  - Metastases to spine [Unknown]
  - Drug ineffective [Unknown]
  - Gait disturbance [Unknown]
  - General physical health deterioration [Unknown]
